FAERS Safety Report 16099961 (Version 1)
Quarter: 2019Q2

REPORT INFORMATION
  Report Type: Spontaneous
  Country: US (occurrence: US)
  Receive Date: 20190320
  Receipt Date: 20190320
  Transmission Date: 20190711
  Serious: No
  Sender: FDA-Public Use
  Company Number: None

PATIENT
  Age: 54 Year
  Sex: Female
  Weight: 139.5 kg

DRUGS (1)
  1. REQUIP [Suspect]
     Active Substance: ROPINIROLE HYDROCHLORIDE
     Indication: RESTLESS LEGS SYNDROME
     Dosage: ?          QUANTITY:3 TABLET(S);?
     Route: 048
     Dates: start: 20150312

REACTIONS (1)
  - Gambling disorder [None]

NARRATIVE: CASE EVENT DATE: 20150319
